FAERS Safety Report 24430947 (Version 3)
Quarter: 2024Q4

REPORT INFORMATION
  Report Type: Spontaneous
  Country: US (occurrence: US)
  Receive Date: 20241014
  Receipt Date: 20241018
  Transmission Date: 20250115
  Serious: Yes (Hospitalization)
  Sender: ROCHE
  Company Number: US-ROCHE-10000104222

PATIENT
  Age: 53 Year
  Sex: Male

DRUGS (3)
  1. XOLAIR [Suspect]
     Active Substance: OMALIZUMAB
     Indication: Idiopathic urticaria
     Route: 058
     Dates: start: 202209
  2. XOLAIR [Suspect]
     Active Substance: OMALIZUMAB
  3. ELIQUIS [Concomitant]
     Active Substance: APIXABAN

REACTIONS (2)
  - Thrombosis [Recovering/Resolving]
  - Drug ineffective [Unknown]

NARRATIVE: CASE EVENT DATE: 20240724
